FAERS Safety Report 11450558 (Version 3)
Quarter: 2016Q1

REPORT INFORMATION
  Report Type: Spontaneous
  Country: US (occurrence: US)
  Receive Date: 20150903
  Receipt Date: 20160113
  Transmission Date: 20160525
  Serious: Yes (Hospitalization)
  Sender: FDA-Public Use
  Company Number: US-ROCHE-1629310

PATIENT
  Sex: Male
  Weight: 81.72 kg

DRUGS (12)
  1. ESBRIET [Suspect]
     Active Substance: PIRFENIDONE
     Dosage: TWO CAPSULES THRICE A DAY WITH FOOD
     Route: 048
     Dates: start: 20150220
  2. TRAZODONE [Concomitant]
     Active Substance: TRAZODONE HYDROCHLORIDE
     Route: 065
     Dates: start: 20150821
  3. FLURAZEPAM [Concomitant]
     Active Substance: FLURAZEPAM\FLURAZEPAM HYDROCHLORIDE
     Dosage: 1 CAPSULE
     Route: 048
     Dates: start: 20140821
  4. NAC (ACETYLCYSTEINE) [Concomitant]
     Route: 065
     Dates: start: 20140821
  5. OMEPRAZOLE. [Concomitant]
     Active Substance: OMEPRAZOLE
     Dosage: 1 CAPSULE
     Route: 048
     Dates: start: 20141217
  6. MUCOMYST [Concomitant]
     Active Substance: ACETYLCYSTEINE
  7. LISINOPRIL. [Concomitant]
     Active Substance: LISINOPRIL
     Route: 065
     Dates: start: 20140821
  8. ESBRIET [Suspect]
     Active Substance: PIRFENIDONE
     Indication: PRODUCT USED FOR UNKNOWN INDICATION
     Dosage: THREE CAPSULES THRICE A DAY
     Route: 048
     Dates: start: 20150220
  9. EFFEXOR XR [Concomitant]
     Active Substance: VENLAFAXINE HYDROCHLORIDE
     Route: 065
     Dates: start: 20141013
  10. NAPROSYN [Concomitant]
     Active Substance: NAPROXEN
     Route: 048
     Dates: start: 20150511
  11. ROPINIROLE HYDROCHLORIDE. [Concomitant]
     Active Substance: ROPINIROLE HYDROCHLORIDE
     Dosage: 1 TABLET BY MOUTH ABOUT 1 HOUR BEFORE BEDTIME
     Route: 065
     Dates: start: 20140821
  12. TURMERIC [Concomitant]
     Active Substance: TURMERIC
     Route: 065
     Dates: start: 20140821

REACTIONS (6)
  - Cellulitis [Unknown]
  - Staphylococcal infection [Unknown]
  - Erythema [Unknown]
  - Diarrhoea [Unknown]
  - Swelling [Unknown]
  - White blood cell count increased [Unknown]
